FAERS Safety Report 5005051-4 (Version None)
Quarter: 2006Q2

REPORT INFORMATION
  Report Type: 
  Country: None (occurrence: None)
  Receive Date: 20060512
  Receipt Date: 20060501
  Transmission Date: 20061013
  Serious: Yes (Other)
  Sender: FDA-Public Use
  Company Number: HQWYE152803MAY06

PATIENT
  Age: 25 Year
  Sex: Female

DRUGS (2)
  1. ADVIL [Suspect]
     Indication: PAIN
     Dosage: 3 CAPSULES ORAL
     Route: 048
     Dates: start: 20060307, end: 20060307
  2. ALESSE-28 (LEVONORGESTROL/ETHINYL ESTRADIOL/INERT, TABLET) [Suspect]
     Indication: CONTRACEPTION
     Dosage: 1 TABLET 1X PER 1 DAY ORAL
     Route: 048
     Dates: start: 20010101

REACTIONS (2)
  - ANAPHYLACTIC SHOCK [None]
  - DRUG HYPERSENSITIVITY [None]
